FAERS Safety Report 20122321 (Version 1)
Quarter: 2021Q4

REPORT INFORMATION
  Report Type: Spontaneous
  Country: US (occurrence: US)
  Receive Date: 20211128
  Receipt Date: 20211128
  Transmission Date: 20220303
  Serious: Yes (Hospitalization, Other)
  Sender: FDA-Public Use
  Company Number: US-PURDUE-USA-2020-0169168

PATIENT
  Sex: Male
  Weight: 77.98 kg

DRUGS (4)
  1. MS CONTIN [Suspect]
     Active Substance: MORPHINE SULFATE
     Indication: Arthritis
     Dosage: 30 MG, Q12H
     Route: 048
     Dates: start: 20161027
  2. HYDROCODONE BITARTRATE AND ACETAMINOPHEN [Suspect]
     Active Substance: ACETAMINOPHEN\HYDROCODONE BITARTRATE
     Indication: Arthritis
     Dosage: 1 TABLET, Q6H PRN
     Route: 048
  3. OPANA [Suspect]
     Active Substance: OXYMORPHONE HYDROCHLORIDE
     Indication: Pain
     Dosage: 10 MG, Q4- 6H PRN
     Route: 048
     Dates: start: 20160606
  4. NORCO [Suspect]
     Active Substance: ACETAMINOPHEN\HYDROCODONE BITARTRATE
     Indication: Arthritis
     Dosage: 1 TABLET, Q6H PRN
     Route: 048

REACTIONS (4)
  - Drug dependence [Unknown]
  - Constipation [Unknown]
  - Drug withdrawal syndrome [Unknown]
  - Sleep disorder [Unknown]
